APPROVED DRUG PRODUCT: ADALAT
Active Ingredient: NIFEDIPINE
Strength: 20MG
Dosage Form/Route: CAPSULE;ORAL
Application: N019478 | Product #002
Applicant: BAYER PHARMACEUTICALS CORP
Approved: Sep 17, 1986 | RLD: No | RS: No | Type: DISCN